FAERS Safety Report 4974005-6 (Version None)
Quarter: 2006Q2

REPORT INFORMATION
  Report Type: 
  Country: None (occurrence: None)
  Receive Date: 20060410
  Receipt Date: 20060331
  Transmission Date: 20061013
  Serious: Yes (Other)
  Sender: FDA-Public Use
  Company Number: HQWYE518324MAR06

PATIENT
  Age: 82 Year
  Sex: Female
  Weight: 78.98 kg

DRUGS (5)
  1. PROTONIX [Suspect]
     Indication: GASTROOESOPHAGEAL REFLUX DISEASE
     Dosage: 40 MG 1X PER 1 DAY ORAL
     Route: 048
     Dates: start: 20050901, end: 20050101
  2. PROTONIX [Suspect]
     Indication: GASTROOESOPHAGEAL REFLUX DISEASE
     Dosage: 40 MG 1X PER 1 DAY ORAL
     Route: 048
     Dates: start: 20060201, end: 20060101
  3. ... [Concomitant]
  4. DIOVAN [Concomitant]
  5. TOPROL-XL [Concomitant]

REACTIONS (5)
  - FATIGUE [None]
  - KIDNEY FIBROSIS [None]
  - NAUSEA [None]
  - NEPHRITIS ALLERGIC [None]
  - NEPHRITIS INTERSTITIAL [None]
